FAERS Safety Report 8575242 (Version 2)
Quarter: 2013Q3

REPORT INFORMATION
  Report Type: Spontaneous
  Country: CA (occurrence: CA)
  Receive Date: 20120523
  Receipt Date: 20130729
  Transmission Date: 20140515
  Serious: Yes (Hospitalization)
  Sender: FDA-Public Use
  Company Number: CA-JNJFOC-20120512718

PATIENT
  Age: 46 Year
  Sex: Female
  Weight: 58.5 kg

DRUGS (10)
  1. REMICADE [Suspect]
     Indication: CROHN^S DISEASE
     Dosage: AGE AT THE TIME OF DRUG START WAS 44 YEARS
     Route: 042
     Dates: start: 20090923
  2. CELEBREX [Concomitant]
     Route: 065
  3. ZOLOFT [Concomitant]
     Route: 065
  4. HYDROMORPH CONTIN [Concomitant]
     Route: 065
  5. LORAZEPAM [Concomitant]
     Route: 065
  6. VITAMIN D [Concomitant]
     Route: 065
  7. HYDROMORPHONE [Concomitant]
     Dosage: 2 MG TO 6 MG
     Route: 065
  8. PANTOPRAZOLE [Concomitant]
     Route: 065
  9. GRAVOL [Concomitant]
     Route: 065
  10. DOCUSATE SODIUM [Concomitant]
     Route: 065

REACTIONS (2)
  - Intestinal resection [Unknown]
  - Intestinal operation [Unknown]
